FAERS Safety Report 15664358 (Version 2)
Quarter: 2019Q1

REPORT INFORMATION
  Report Type: Spontaneous
  Country: FR (occurrence: FR)
  Receive Date: 20181128
  Receipt Date: 20190304
  Transmission Date: 20190417
  Serious: Yes (Hospitalization, Other)
  Sender: FDA-Public Use
  Company Number: FR-B.I. PHARMACEUTICALS,INC./RIDGEFIELD-2018-BI-057151

PATIENT
  Age: 69 Year
  Sex: Male
  Weight: 90 kg

DRUGS (3)
  1. FLECAINE [Concomitant]
     Active Substance: FLECAINIDE
     Indication: PRODUCT USED FOR UNKNOWN INDICATION
     Route: 065
  2. PRADAXA [Suspect]
     Active Substance: DABIGATRAN ETEXILATE MESYLATE
     Route: 048
     Dates: start: 20180926
  3. PRADAXA [Suspect]
     Active Substance: DABIGATRAN ETEXILATE MESYLATE
     Indication: ATRIAL FIBRILLATION
     Route: 048
     Dates: end: 20180924

REACTIONS (6)
  - Pulmonary thrombosis [Recovered/Resolved]
  - Haematuria [Recovered/Resolved]
  - Cerebrovascular accident [Recovered/Resolved]
  - Hemiplegia [Recovered/Resolved]
  - Lung neoplasm malignant [Recovered/Resolved]
  - Haemorrhagic transformation stroke [Recovered/Resolved]

NARRATIVE: CASE EVENT DATE: 20180924
